FAERS Safety Report 18482765 (Version 1)
Quarter: 2020Q4

REPORT INFORMATION
  Report Type: Not Available
  Country: US (occurrence: US)
  Receive Date: 20201109
  Receipt Date: 20201109
  Transmission Date: 20210114
  Serious: Yes (Other)
  Sender: FDA-Public Use
  Company Number: US-NEUROCRINE BIOSCIENCES INC.-2020NBI03989

PATIENT
  Age: 51 Year
  Sex: Male

DRUGS (1)
  1. INGREZZA [Suspect]
     Active Substance: VALBENAZINE
     Indication: TARDIVE DYSKINESIA
     Route: 048
     Dates: start: 20200731

REACTIONS (3)
  - Ulcer [Unknown]
  - Rectal haemorrhage [Unknown]
  - Hernia repair [Recovered/Resolved]

NARRATIVE: CASE EVENT DATE: 20201021
